FAERS Safety Report 4431163-X (Version None)
Quarter: 2004Q3

REPORT INFORMATION
  Report Type: 
  Country: None (occurrence: None)
  Receive Date: 20040824
  Receipt Date: 20040818
  Transmission Date: 20050211
  Serious: Yes (Hospitalization)
  Sender: FDA-Public Use
  Company Number: US-JNJFOC-20040806249

PATIENT
  Age: 70 Year
  Sex: Female
  Weight: 61.69 kg

DRUGS (3)
  1. ULTRAM [Suspect]
     Indication: PAIN
     Dosage: 6-8 TABLETS PER DAY
     Route: 049
  2. INSULIN [Concomitant]
  3. HEART MEDS [Concomitant]

REACTIONS (4)
  - FALL [None]
  - NERVE COMPRESSION [None]
  - RIB FRACTURE [None]
  - SPINAL FRACTURE [None]
